FAERS Safety Report 8610767-4 (Version None)
Quarter: 2012Q3

REPORT INFORMATION
  Report Type: 
  Country: None (occurrence: None)
  Receive Date: 20120423
  Receipt Date: 20081026
  Transmission Date: 20120928
  Serious: Yes (Other)
  Sender: FDA-Public Use
  Company Number: PHEH2008US11620

PATIENT

DRUGS (1)
  1. FEMARA [Suspect]

REACTIONS (2)
  - BONE PAIN [None]
  - ARTHRALGIA [None]
